FAERS Safety Report 10278041 (Version 1)
Quarter: 2014Q3

REPORT INFORMATION
  Report Type: Spontaneous
  Country: PL (occurrence: PL)
  Receive Date: 20140704
  Receipt Date: 20140704
  Transmission Date: 20150326
  Serious: Yes (Hospitalization)
  Sender: FDA-Public Use
  Company Number: PL-JNJFOC-20140615607

PATIENT
  Sex: Female

DRUGS (1)
  1. RISPERIDONE. [Suspect]
     Active Substance: RISPERIDONE
     Indication: SCHIZOPHRENIA
     Route: 048

REACTIONS (11)
  - Blood prolactin increased [Unknown]
  - Drug ineffective [Unknown]
  - Anxiety [Unknown]
  - Amimia [Unknown]
  - Blood glucose abnormal [Unknown]
  - Extrapyramidal disorder [Unknown]
  - Muscle rigidity [Unknown]
  - Withdrawal syndrome [Unknown]
  - Investigation [Unknown]
  - Amenorrhoea [Unknown]
  - Compulsions [Unknown]
